FAERS Safety Report 16838945 (Version 1)
Quarter: 2019Q3

REPORT INFORMATION
  Report Type: Spontaneous
  Country: JP (occurrence: JP)
  Receive Date: 20190923
  Receipt Date: 20190923
  Transmission Date: 20191005
  Serious: Yes (Other)
  Sender: FDA-Public Use
  Company Number: JP-PFIZER INC-2018368878

PATIENT
  Age: 54 Year
  Sex: Male

DRUGS (4)
  1. INLYTA [Suspect]
     Active Substance: AXITINIB
     Indication: RENAL CANCER
     Dosage: UNK
     Route: 048
  2. THYRADIN [Concomitant]
     Active Substance: LEVOTHYROXINE
     Route: 048
  3. DOPACOL [Concomitant]
     Active Substance: CARBIDOPA\LEVODOPA
     Route: 048
  4. TALTIRELIN [Concomitant]
     Active Substance: TALTIRELIN
     Route: 048

REACTIONS (1)
  - Impaired healing [Recovered/Resolved]
